FAERS Safety Report 7231327-6 (Version None)
Quarter: 2011Q1

REPORT INFORMATION
  Report Type: 
  Country: None (occurrence: None)
  Receive Date: 20110118
  Receipt Date: 20110106
  Transmission Date: 20110831
  Serious: Yes (Death, Hospitalization, Other)
  Sender: FDA-Public Use
  Company Number: US-CELGENEUS-163-21880-10121888

PATIENT
  Sex: Female

DRUGS (11)
  1. REVLIMID [Suspect]
     Route: 048
     Dates: start: 20100501, end: 20100101
  2. LEVOTHROID [Concomitant]
     Route: 065
  3. FOSAMAX [Concomitant]
     Route: 065
  4. LISINOPRIL [Concomitant]
     Route: 065
  5. FLUIDS [Concomitant]
     Route: 051
     Dates: start: 20100101, end: 20100101
  6. DIURETICS [Concomitant]
     Route: 065
     Dates: start: 20100101, end: 20100101
  7. PERCOCET [Concomitant]
     Route: 065
  8. REVLIMID [Suspect]
     Route: 048
     Dates: start: 20080101
  9. OXYGEN [Concomitant]
     Route: 055
     Dates: start: 20100101, end: 20100101
  10. LEXAPRO [Concomitant]
     Route: 065
  11. ATIVAN [Concomitant]
     Route: 065

REACTIONS (15)
  - SOMNOLENCE [None]
  - MALNUTRITION [None]
  - MYELODYSPLASTIC SYNDROME [None]
  - HYPOKALAEMIA [None]
  - PYREXIA [None]
  - HYPOCALCAEMIA [None]
  - TREATMENT NONCOMPLIANCE [None]
  - ANAEMIA [None]
  - HYPOMAGNESAEMIA [None]
  - HYPOPHOSPHATAEMIA [None]
  - HYPERGLYCAEMIA [None]
  - FATIGUE [None]
  - PANCYTOPENIA [None]
  - BRONCHITIS [None]
  - HYPONATRAEMIA [None]
